FAERS Safety Report 18440112 (Version 1)
Quarter: 2020Q4

REPORT INFORMATION
  Report Type: Spontaneous
  Country: US (occurrence: US)
  Receive Date: 20201028
  Receipt Date: 20201028
  Transmission Date: 20210114
  Serious: No
  Sender: FDA-Public Use
  Company Number: None

PATIENT
  Age: 64 Year
  Sex: Male
  Weight: 85.05 kg

DRUGS (4)
  1. LISIBOPRIL [Concomitant]
  2. ESOMEPRISOL [Concomitant]
  3. EUCRISA [Suspect]
     Active Substance: CRISABOROLE
     Indication: DRY SKIN
     Route: 061
  4. ALIVE ONCE DAILY [Concomitant]

REACTIONS (3)
  - Erythema [None]
  - Drug ineffective [None]
  - Pruritus [None]

NARRATIVE: CASE EVENT DATE: 20200912
